FAERS Safety Report 18135586 (Version 1)
Quarter: 2020Q3

REPORT INFORMATION
  Report Type: Spontaneous
  Country: ES (occurrence: ES)
  Receive Date: 20200811
  Receipt Date: 20200811
  Transmission Date: 20201103
  Serious: Yes (Hospitalization)
  Sender: FDA-Public Use
  Company Number: ES-PFIZER INC-2020302057

PATIENT
  Age: 96 Year
  Sex: Female

DRUGS (2)
  1. ADIRO [Suspect]
     Active Substance: ASPIRIN
     Indication: THROMBOSIS PROPHYLAXIS
     Dosage: 100 MG, 1X/DAY (FREQ:24 H;0?1?0)
     Route: 048
     Dates: start: 20200203, end: 20200423
  2. SERTRALINE HCL [Suspect]
     Active Substance: SERTRALINE HYDROCHLORIDE
     Dosage: 5 MG, 1X/DAY (BREAKFAST)
     Route: 048
     Dates: start: 20200203, end: 20200423

REACTIONS (1)
  - Iron deficiency anaemia [Recovered/Resolved]

NARRATIVE: CASE EVENT DATE: 20200423
